FAERS Safety Report 14858277 (Version 2)
Quarter: 2018Q2

REPORT INFORMATION
  Report Type: Spontaneous
  Country: US (occurrence: US)
  Receive Date: 20180508
  Receipt Date: 20180508
  Transmission Date: 20180711
  Serious: Yes (Other)
  Sender: FDA-Public Use
  Company Number: US-CELGENEUS-USA-20180500846

PATIENT
  Age: 63 Year
  Sex: Female
  Weight: 119.4 kg

DRUGS (1)
  1. REVLIMID [Suspect]
     Active Substance: LENALIDOMIDE
     Indication: PLASMACYTOMA
     Dosage: 25 MILLIGRAM
     Route: 048
     Dates: start: 20180425

REACTIONS (3)
  - Erythema [Unknown]
  - Eye swelling [Unknown]
  - Swelling [Unknown]

NARRATIVE: CASE EVENT DATE: 20180426
